FAERS Safety Report 6922080-1 (Version None)
Quarter: 2010Q3

REPORT INFORMATION
  Report Type: 
  Country: None (occurrence: None)
  Receive Date: 20100812
  Receipt Date: 20100803
  Transmission Date: 20110219
  Serious: Yes (Hospitalization)
  Sender: FDA-Public Use
  Company Number: US-ABBOTT-10P-163-0661491-00

PATIENT
  Sex: Female
  Weight: 90.8 kg

DRUGS (8)
  1. HUMIRA [Suspect]
     Indication: RHEUMATOID ARTHRITIS
     Dates: start: 20090520, end: 20090602
  2. HUMIRA [Suspect]
     Dates: start: 20100125, end: 20100607
  3. HUMIRA [Suspect]
     Dates: start: 20100607
  4. PREDNISONE [Suspect]
     Indication: RHEUMATOID ARTHRITIS
  5. PLAQUENIL [Concomitant]
     Indication: PRODUCT USED FOR UNKNOWN INDICATION
  6. LEXAPRO [Concomitant]
     Indication: PRODUCT USED FOR UNKNOWN INDICATION
  7. CRESTOR [Concomitant]
     Indication: PRODUCT USED FOR UNKNOWN INDICATION
     Dates: start: 20100101
  8. CRESTOR [Concomitant]
     Dates: end: 20091101

REACTIONS (10)
  - ABDOMINAL RIGIDITY [None]
  - CLOSTRIDIAL INFECTION [None]
  - COLITIS [None]
  - FATIGUE [None]
  - GENERALISED OEDEMA [None]
  - HEPATIC ENZYME INCREASED [None]
  - LARGE INTESTINAL ULCER [None]
  - PAIN [None]
  - WEIGHT INCREASED [None]
  - WHITE BLOOD CELL COUNT INCREASED [None]
